FAERS Safety Report 4497690-4 (Version None)
Quarter: 2004Q4

REPORT INFORMATION
  Report Type: 
  Country: None (occurrence: None)
  Receive Date: 20041108
  Receipt Date: 20041022
  Transmission Date: 20050328
  Serious: Yes (Hospitalization)
  Sender: FDA-Public Use
  Company Number: FR-JNJFOC-20041003531

PATIENT
  Sex: Female
  Weight: 56 kg

DRUGS (5)
  1. RISPERDAL [Suspect]
     Indication: AGITATION
     Route: 049
  2. TRILEPTAL [Concomitant]
  3. SULFARLEM [Concomitant]
     Indication: DRY MOUTH
  4. STILNOX [Concomitant]
     Indication: INSOMNIA
  5. URBANYL [Concomitant]
     Indication: AGITATION

REACTIONS (8)
  - BRAIN SCAN ABNORMAL [None]
  - DEPRESSED LEVEL OF CONSCIOUSNESS [None]
  - DYSKINESIA [None]
  - ELECTROENCEPHALOGRAM ABNORMAL [None]
  - HYPERTONIA [None]
  - MIOSIS [None]
  - PROSTRATION [None]
  - SEDATION [None]
